FAERS Safety Report 13278294 (Version 1)
Quarter: 2017Q1

REPORT INFORMATION
  Report Type: Report from Study
  Country: CA (occurrence: CA)
  Receive Date: 20170228
  Receipt Date: 20170228
  Transmission Date: 20170428
  Serious: Yes (Other)
  Sender: FDA-Public Use
  Company Number: CA-HLSUS-2016-CA-000588

PATIENT
  Age: 87 Year
  Sex: Female

DRUGS (6)
  1. CARBIDOPA. [Concomitant]
     Active Substance: CARBIDOPA
     Indication: PARKINSON^S DISEASE
     Dosage: 25 MG 3 X DAY
     Route: 048
  2. STALEVO [Concomitant]
     Active Substance: CARBIDOPA\ENTACAPONE\LEVODOPA
     Indication: PARKINSON^S DISEASE
     Dosage: 150 MG 3XDAY
     Route: 048
  3. CLOZARIL [Suspect]
     Active Substance: CLOZAPINE
     Indication: TREMOR
     Dosage: 12.5 MG ONCE DAILY
     Route: 048
     Dates: start: 20161012, end: 20161024
  4. PROPRANOLOL [Concomitant]
     Active Substance: PROPRANOLOL HYDROCHLORIDE
     Indication: TREMOR
     Dosage: 10 MG 2 XDAY
     Route: 048
  5. SINEMET 100/25 [Concomitant]
     Indication: PARKINSON^S DISEASE
     Dosage: 2 TABLETS 3XDAY
     Route: 048
  6. PHENOBARBITAL. [Concomitant]
     Active Substance: PHENOBARBITAL
     Indication: SLEEP DISORDER
     Dosage: 15 MG
     Route: 048

REACTIONS (2)
  - Activities of daily living impaired [Unknown]
  - Somnolence [Unknown]

NARRATIVE: CASE EVENT DATE: 20161012
